FAERS Safety Report 7218379-4 (Version None)
Quarter: 2011Q1

REPORT INFORMATION
  Report Type: 
  Country: None (occurrence: None)
  Receive Date: 20110110
  Receipt Date: 20110105
  Transmission Date: 20110831
  Serious: Yes (Other)
  Sender: FDA-Public Use
  Company Number: AT-PFIZER INC-2011002450

PATIENT
  Sex: Female

DRUGS (3)
  1. SAYANA [Suspect]
     Dosage: 104 MG, EVERY 3 WEEKS
     Route: 058
     Dates: start: 20090901
  2. SAYANA [Suspect]
     Dosage: 104 MG, EVERY 3 MONTHS
     Route: 058
     Dates: start: 20100301
  3. SAYANA [Suspect]
     Dosage: 104 MG, EVERY 3 MONTHS
     Route: 058
     Dates: start: 20091201

REACTIONS (1)
  - INJECTION SITE ATROPHY [None]
